FAERS Safety Report 5472289-1 (Version None)
Quarter: 2007Q3

REPORT INFORMATION
  Report Type: 
  Country: None (occurrence: None)
  Receive Date: 20070925
  Receipt Date: 20070917
  Transmission Date: 20080115
  Serious: Yes (Hospitalization)
  Sender: FDA-Public Use
  Company Number: CHPA2007US09756

PATIENT
  Age: 57 Year
  Sex: Male

DRUGS (3)
  1. LACTULOSE [Suspect]
     Indication: CONSTIPATION
     Dosage: 30 ML, TID, ORAL, 45 ML, QID, 60 ML, QID, ORAL, DAILY ENEMAS WERE GIVEN, RECTAL
  2. DULCOLAX [Suspect]
     Indication: CONSTIPATION
     Dosage: EACH EVENING
  3. NEOMYCIN [Suspect]
     Dosage: 2 G, QD

REACTIONS (17)
  - ABDOMINAL DISTENSION [None]
  - ABDOMINAL PAIN [None]
  - ASTERIXIS [None]
  - CHRONIC HEPATIC FAILURE [None]
  - COLONIC ATONY [None]
  - CONFUSIONAL STATE [None]
  - CONSTIPATION [None]
  - ENCEPHALOPATHY [None]
  - FAECALOMA [None]
  - MEGACOLON [None]
  - MENTAL DISORDER [None]
  - MENTAL STATUS CHANGES [None]
  - PNEUMATOSIS INTESTINALIS [None]
  - PNEUMOPERITONEUM [None]
  - SLEEP PHASE RHYTHM DISTURBANCE [None]
  - SOMNOLENCE [None]
  - SPEECH DISORDER [None]
